FAERS Safety Report 21410514 (Version 1)
Quarter: 2022Q4

REPORT INFORMATION
  Report Type: Spontaneous
  Country: AU (occurrence: AU)
  Receive Date: 20221005
  Receipt Date: 20221005
  Transmission Date: 20230112
  Serious: Yes (Other)
  Sender: FDA-Public Use
  Company Number: AU-ABBVIE-4134376

PATIENT
  Age: 16 Year
  Sex: Female

DRUGS (1)
  1. ADALIMUMAB [Suspect]
     Active Substance: ADALIMUMAB
     Indication: Product used for unknown indication
     Route: 058

REACTIONS (7)
  - Hepatitis acute [Unknown]
  - Conjunctivitis [Unknown]
  - Vaginal erosion [Unknown]
  - Drug effective for unapproved indication [Unknown]
  - Off label use [Unknown]
  - Pharyngeal inflammation [Unknown]
  - Stomatitis [Unknown]
